FAERS Safety Report 6404616-2 (Version None)
Quarter: 2009Q4

REPORT INFORMATION
  Report Type: 
  Country: None (occurrence: None)
  Receive Date: 20091016
  Receipt Date: 20091012
  Transmission Date: 20100525
  Serious: Yes (Other)
  Sender: FDA-Public Use
  Company Number: GR-GILEAD-E2B_00000462

PATIENT
  Age: 69 Year
  Sex: Female

DRUGS (1)
  1. AMBRISENTAN [Suspect]
     Indication: PULMONARY HYPERTENSION
     Route: 048
     Dates: start: 20090701

REACTIONS (4)
  - ERYTHEMA [None]
  - INFLAMMATION [None]
  - NECROSIS [None]
  - STEVENS-JOHNSON SYNDROME [None]
